FAERS Safety Report 16342385 (Version 2)
Quarter: 2019Q2

REPORT INFORMATION
  Report Type: Spontaneous
  Country: CA (occurrence: CA)
  Receive Date: 20190522
  Receipt Date: 20190626
  Transmission Date: 20190711
  Serious: Yes (Hospitalization, Other)
  Sender: FDA-Public Use
  Company Number: CA-AUROBINDO-AUR-APL-2019-027417

PATIENT

DRUGS (30)
  1. ACETAMINOPHEN. [Suspect]
     Active Substance: ACETAMINOPHEN
     Indication: PAIN IN EXTREMITY
     Dosage: 650.0 MILLIGRAM AS REQUIRED
     Route: 048
  2. T-20 [Concomitant]
     Active Substance: ENFUVIRTIDE
     Indication: PRODUCT USED FOR UNKNOWN INDICATION
     Dosage: UNK
     Route: 065
  3. QUETIAPINE FILM-COATED TABLET [Suspect]
     Active Substance: QUETIAPINE
     Indication: PSYCHOTIC DISORDER
     Dosage: 50.0 MILLIGRAM, ONCE A DAY
     Route: 048
  4. PROCYCLIDINE HCL [Suspect]
     Active Substance: PROCYCLIDINE HYDROCHLORIDE
     Indication: PROPHYLAXIS
     Dosage: 2.5 MILLIGRAM, ONCE A DAY
     Route: 048
  5. TRAZODONE [Suspect]
     Active Substance: TRAZODONE HYDROCHLORIDE
     Indication: DEPRESSION
     Dosage: 50 MILLIGRAM, ONCE A DAY
     Route: 048
  6. 3TC [Concomitant]
     Active Substance: LAMIVUDINE
     Indication: PRODUCT USED FOR UNKNOWN INDICATION
     Dosage: UNK
     Route: 065
  7. APTIVUS [Suspect]
     Active Substance: TIPRANAVIR
     Indication: HIV INFECTION
     Dosage: 500 MILLIGRAM, ONCE A DAY
     Route: 048
  8. DIAZEPAM. [Suspect]
     Active Substance: DIAZEPAM
     Dosage: 2750.0 MILLIGRAM, UNK
     Route: 065
  9. TEVA ATOVAQUONE PROGUANIL [Concomitant]
     Indication: PRODUCT USED FOR UNKNOWN INDICATION
     Dosage: UNK
     Route: 065
  10. MULTIVITAMIN [Concomitant]
     Active Substance: VITAMINS
     Indication: PRODUCT USED FOR UNKNOWN INDICATION
     Dosage: UNK
     Route: 065
  11. LACTULOSE. [Concomitant]
     Active Substance: LACTULOSE
     Indication: PRODUCT USED FOR UNKNOWN INDICATION
     Dosage: UNK
     Route: 065
  12. ABACAVIR. [Concomitant]
     Active Substance: ABACAVIR
     Indication: PRODUCT USED FOR UNKNOWN INDICATION
     Dosage: UNK
     Route: 065
  13. CALCIUM CARBONATE. [Concomitant]
     Active Substance: CALCIUM CARBONATE
     Indication: PRODUCT USED FOR UNKNOWN INDICATION
     Dosage: UNK
     Route: 065
  14. KALETRA [Concomitant]
     Active Substance: LOPINAVIR\RITONAVIR
     Indication: PRODUCT USED FOR UNKNOWN INDICATION
     Dosage: UNK
     Route: 065
  15. LACTULOSE. [Concomitant]
     Active Substance: LACTULOSE
     Indication: PRODUCT USED FOR UNKNOWN INDICATION
     Dosage: UNK
     Route: 065
  16. DIAZEPAM. [Suspect]
     Active Substance: DIAZEPAM
     Dosage: 250 MILLIGRAM, TWO TIMES A DAY
     Route: 048
  17. RISPERIDONE. [Suspect]
     Active Substance: RISPERIDONE
     Indication: PSYCHOTIC DISORDER
     Dosage: 3.0 MILLIGRAM, ONCE A DAY
     Route: 048
  18. TEGRETOL [Suspect]
     Active Substance: CARBAMAZEPINE
     Indication: HYPOMANIA
     Dosage: 200 MILLIGRAM, TWO TIMES A DAY
     Route: 065
  19. IMODIUM [Concomitant]
     Active Substance: LOPERAMIDE HYDROCHLORIDE
     Indication: PRODUCT USED FOR UNKNOWN INDICATION
     Dosage: UNK
     Route: 065
  20. NYSTATIN. [Concomitant]
     Active Substance: NYSTATIN
     Indication: PRODUCT USED FOR UNKNOWN INDICATION
     Dosage: UNK
     Route: 065
  21. ENFUVIRTIDE. [Concomitant]
     Active Substance: ENFUVIRTIDE
     Indication: PRODUCT USED FOR UNKNOWN INDICATION
     Dosage: UNK
     Route: 065
  22. BISACODYL. [Concomitant]
     Active Substance: BISACODYL
     Indication: PRODUCT USED FOR UNKNOWN INDICATION
     Dosage: UNK
     Route: 065
  23. OLANZAPINE. [Suspect]
     Active Substance: OLANZAPINE
     Indication: PSYCHOTIC DISORDER
     Dosage: 5.0 MILLIGRAM, ONCE A DAY
     Route: 048
  24. OLANZAPINE. [Suspect]
     Active Substance: OLANZAPINE
     Dosage: 12.5 MILLIGRAM, ONCE A DAY
     Route: 065
  25. CLONAZEPAM. [Suspect]
     Active Substance: CLONAZEPAM
     Indication: HYPOMANIA
     Dosage: 3.0 MILLIGRAM, ONCE A DAY
     Route: 048
  26. DIAZEPAM. [Suspect]
     Active Substance: DIAZEPAM
     Indication: DEPRESSION
     Dosage: 1500 MILLIGRAM, ONCE A DAY
     Route: 048
  27. BENADRYL [Concomitant]
     Active Substance: DIPHENHYDRAMINE HYDROCHLORIDE
     Indication: PRODUCT USED FOR UNKNOWN INDICATION
     Dosage: UNK
     Route: 065
  28. PROCYCLIDINE HCL [Suspect]
     Active Substance: PROCYCLIDINE HYDROCHLORIDE
     Indication: MUSCULOSKELETAL STIFFNESS
  29. CHLORAL HYDRATE [Concomitant]
     Active Substance: CHLORAL HYDRATE
     Indication: PRODUCT USED FOR UNKNOWN INDICATION
     Dosage: UNK
     Route: 065
  30. LITHIUM. [Concomitant]
     Active Substance: LITHIUM
     Indication: PRODUCT USED FOR UNKNOWN INDICATION
     Dosage: UNK
     Route: 065

REACTIONS (12)
  - Hepatotoxicity [Unknown]
  - Hypomania [Unknown]
  - Blood bilirubin increased [Unknown]
  - Condition aggravated [Unknown]
  - Psychotic disorder [Unknown]
  - Vomiting [Unknown]
  - Cholelithiasis [Unknown]
  - Pneumonia [Unknown]
  - Nausea [Unknown]
  - Hepatic enzyme increased [Unknown]
  - Jaundice cholestatic [Unknown]
  - Schizophrenia [Unknown]
